FAERS Safety Report 16951491 (Version 2)
Quarter: 2019Q4

REPORT INFORMATION
  Report Type: Spontaneous
  Country: CA (occurrence: CA)
  Receive Date: 20191023
  Receipt Date: 20191216
  Transmission Date: 20200122
  Serious: Yes (Death, Other)
  Sender: FDA-Public Use
  Company Number: CA-PFIZER INC-2016585147

PATIENT
  Age: 55 Year
  Sex: Female

DRUGS (59)
  1. GENOTROPIN GOQUICK [Suspect]
     Active Substance: SOMATROPIN
     Dosage: 0.9 MG, DAILY
     Route: 058
  2. FLOVENT [Concomitant]
     Active Substance: FLUTICASONE PROPIONATE
     Dosage: 1 DF (PUFF), 2X/DAY AS NEEDED
  3. APO FUROSEMIDE [Concomitant]
     Active Substance: FUROSEMIDE
     Dosage: 20 MG, 2X/DAY AS NEEDED IF WEIGHT INCREASES MORE THAN 3 LBS
     Route: 048
  4. PPO CLOPIDROGEL [Concomitant]
     Indication: CARDIOVASCULAR DISORDER
     Dosage: 75 MG, DAILY
     Route: 048
  5. JAMP VITAMIN D [Concomitant]
     Dosage: 1000 IU, DAILY
     Route: 048
  6. PMS PREGABALIN [Concomitant]
     Active Substance: PREGABALIN
     Dosage: 40 MG, DAILY
     Route: 048
  7. LIPIDIL EZ [Concomitant]
     Active Substance: FENOFIBRATE
     Dosage: 145 MG, DAILY
     Route: 048
  8. CLOTRIMADERM [Concomitant]
     Active Substance: CLOTRIMAZOLE
     Dosage: APPLY TO LESIONS AS PRESCRIBED
     Route: 061
  9. VICTOZA [Concomitant]
     Active Substance: LIRAGLUTIDE
     Indication: OBESITY
  10. SYNTHROID [Concomitant]
     Active Substance: LEVOTHYROXINE SODIUM
     Indication: THYROID DISORDER
     Dosage: 0.1 MG, 1X/DAY
     Route: 048
  11. MYRBETRIQ [Concomitant]
     Active Substance: MIRABEGRON
     Indication: BLADDER DISORDER
     Dosage: 50 MG, 1X/DAY
     Route: 048
  12. APO FUROSEMIDE [Concomitant]
     Active Substance: FUROSEMIDE
     Dosage: 120 MG, 1X/DAY
     Route: 048
  13. PMS ISMN [Concomitant]
     Dosage: 60 MG, 1X/DAY
     Route: 048
  14. JAMP ASA [Concomitant]
     Active Substance: ASPIRIN
     Indication: CARDIOVASCULAR DISORDER
     Dosage: 80 MG, 1X/DAY
     Route: 048
  15. GENOTROPIN GOQUICK [Suspect]
     Active Substance: SOMATROPIN
     Indication: GROWTH HORMONE DEFICIENCY
     Dosage: 0.1 MG, CYCLIC (5 DAYS WEEKLY)
     Route: 058
     Dates: start: 20170824
  16. APO FUROSEMIDE [Concomitant]
     Active Substance: FUROSEMIDE
     Indication: FLUID RETENTION
     Dosage: 40 MG, 2X/DAY
     Route: 048
  17. JAMP VITAMIN D [Concomitant]
     Dosage: 10000 IU, WEEKLY
     Route: 048
  18. PMS PREGABALIN [Concomitant]
     Active Substance: PREGABALIN
     Dosage: 125 MG ANTE MERIDIEM (AM) AND 100 MG POST MERIDIEM (PM)
     Route: 048
  19. PANTOPRAZOLE SODIUM. [Concomitant]
     Active Substance: PANTOPRAZOLE SODIUM
     Dosage: 40 MG, 2X/DAY
     Route: 048
  20. GENOTROPIN GOQUICK [Suspect]
     Active Substance: SOMATROPIN
     Dosage: 0.1 MG, CYCLIC (5 DAYS WEEKLY, 3 DAYS IN A ROW, STOP 1 DAY, THEN 2 DAY IN A ROW AND STOP FOR 1 DAY)
     Route: 058
  21. SANDOZ-BISOPROLOL [Concomitant]
     Active Substance: BISOPROLOL FUMARATE
     Indication: BLOOD PRESSURE ABNORMAL
     Dosage: 10 MG, 1X/DAY
     Route: 048
  22. PMS ISMN [Concomitant]
     Dosage: 60 MG, 2X/DAY(EVERY 12 HOURS)
     Route: 048
  23. JAMP K CITRATE [Concomitant]
     Indication: BLOOD POTASSIUM ABNORMAL
     Dosage: 20 MMOL, 2 TABLETS ONCE DAILY (1500 MG ORAL DAILY)
     Route: 048
  24. GLUCOBAY [Concomitant]
     Active Substance: ACARBOSE
     Indication: DIABETES MELLITUS
     Dosage: 50 MG, 3X/DAY
     Route: 048
  25. APO-SULFATRIM [Concomitant]
     Active Substance: SULFAMETHOXAZOLE\TRIMETHOPRIM
     Dosage: 1 DF, 2X/DAY (FOR 10 DAYS, IF NEEDED IF CYSTITIS)
     Route: 048
  26. LOPROX [Concomitant]
     Active Substance: CICLOPIROX\CICLOPIROX OLAMINE
     Dosage: APPLY TO LESIONS, 2X/DAY FOR 4 WEEKS
     Route: 061
  27. SEREVENT DISKUS [Concomitant]
     Active Substance: SALMETEROL XINAFOATE
     Indication: ASTHMA
     Dosage: 50 MCG 1 INHALATION TWO TIMES A DAY
     Route: 055
  28. VICTOZA [Concomitant]
     Active Substance: LIRAGLUTIDE
     Indication: DIABETES MELLITUS
     Dosage: 1.8 MG, 1X/DAY
     Route: 058
  29. LEVEMIR [Concomitant]
     Active Substance: INSULIN DETEMIR
     Indication: BLOOD INSULIN ABNORMAL
     Dosage: INJECTION UNTIL GLYCEMIC INDEX IN EQUAL OR INFERIOR TO 7-60 UNITS IN THE MORNING
     Route: 058
  30. SYNTHROID [Concomitant]
     Active Substance: LEVOTHYROXINE SODIUM
     Dosage: 0.175 MG, DAILY
     Route: 048
  31. EURO-FERROUS SULFATE [Concomitant]
     Dosage: 300 MG, ALTERNATE DAY
     Route: 048
  32. APO-HYDROXYZINE [Concomitant]
     Active Substance: HYDROXYZINE HYDROCHLORIDE
     Indication: HYPERSENSITIVITY
     Dosage: 25 MG, 4X/DAY IF NEEDED
     Route: 048
  33. PMS SENNOSIDES [Concomitant]
     Indication: CONSTIPATION
     Dosage: 2 DF, (8.6 MG, 2 TABLETS 1X/DAY TO 2X/DAY)
     Route: 048
  34. PMS PREGABALIN [Concomitant]
     Active Substance: PREGABALIN
     Dosage: 75 MG, DAILY
     Route: 048
  35. PIOGLITAZONE SANDOZ [Concomitant]
     Active Substance: PIOGLITAZONE
     Dosage: 15 MG, 1X/DAY
     Route: 048
  36. RATIO-METFORMIN [Concomitant]
     Active Substance: METFORMIN HYDROCHLORIDE
     Indication: DIABETES MELLITUS
     Dosage: 850 MG, 3X/DAY
     Route: 048
  37. NOVO-SPIROTON [Concomitant]
     Indication: BLOOD PRESSURE ABNORMAL
     Dosage: 50 MG, 1X/DAY
     Route: 048
  38. SANDOZ DULOXETINE [Concomitant]
     Active Substance: DULOXETINE HYDROCHLORIDE
     Dosage: AS PER CALANDER
     Route: 048
  39. ALVESCO [Concomitant]
     Active Substance: CICLESONIDE
     Dosage: 1 DF, 2X/DAY
     Route: 055
  40. NOVORAPID [Concomitant]
     Active Substance: INSULIN ASPART
     Indication: BLOOD INSULIN ABNORMAL
     Dosage: 36 UNITS AM, 30 UNITS AT LUNCH, 36 UNITS PM
     Route: 058
  41. APO FUROSEMIDE [Concomitant]
     Active Substance: FUROSEMIDE
     Dosage: 40 MG, 2X/DAY
     Route: 048
  42. OMEGA 3 [Concomitant]
     Active Substance: OMEGA-3 FATTY ACIDS
     Dosage: 1000 IU, DAILY
     Route: 048
  43. PANTOPRAZOLE SODIUM. [Concomitant]
     Active Substance: PANTOPRAZOLE SODIUM
     Dosage: 40 MG, DAILY
     Route: 048
  44. FORXIGA [Concomitant]
     Active Substance: DAPAGLIFLOZIN
     Indication: DIABETES MELLITUS
     Dosage: 10 MG, DAILY
     Route: 048
  45. VENTOLIN HFA [Concomitant]
     Active Substance: ALBUTEROL SULFATE
     Indication: ASTHMA
     Dosage: 2 DF, 4X/DAY IF NEEDED
     Route: 055
  46. PEGALAX [Concomitant]
     Dosage: DISOLVE 17G IN 250 ML WATER, ALTERNATE DAY
     Route: 048
  47. DOCUSATE SODIUM. [Concomitant]
     Active Substance: DOCUSATE SODIUM
     Dosage: 200 MG, 2X/DAY
     Route: 048
  48. GENOTROPIN GOQUICK [Suspect]
     Active Substance: SOMATROPIN
     Dosage: 0.2 MG, DAILY 6/7 DAYS
     Route: 058
  49. GENOTROPIN GOQUICK [Suspect]
     Active Substance: SOMATROPIN
     Dosage: 0.6 MG, DAILY
     Route: 058
  50. AMLODIPINE BESILATE [Concomitant]
     Active Substance: AMLODIPINE BESYLATE
     Dosage: 5 MG, DAILY
     Route: 048
  51. OMEGA 3 [Concomitant]
     Active Substance: OMEGA-3 FATTY ACIDS
     Dosage: 1000 MG, 3X/DAY
     Route: 048
  52. NOVO-SPIROTON [Concomitant]
     Dosage: 25 MG, 1X/DAY
     Route: 048
  53. SANDOZ DULOXETINE [Concomitant]
     Active Substance: DULOXETINE HYDROCHLORIDE
     Dosage: 30 MG, 1X/DAY
     Route: 048
  54. VENTOLIN HFA [Concomitant]
     Active Substance: ALBUTEROL SULFATE
     Dosage: 2 PUFFS TWICE DAILY (BID) AS NEEDED (PRN)
     Route: 055
  55. DEXILANT [Concomitant]
     Active Substance: DEXLANSOPRAZOLE
     Dosage: 60 MG, DAILY
  56. TEVA ROSUVASTATIN [Concomitant]
     Indication: BLOOD CHOLESTEROL ABNORMAL
     Dosage: 5 MG, 1X/DAY
     Route: 048
  57. MINT AMLODIPINE [Concomitant]
     Indication: BLOOD PRESSURE ABNORMAL
     Dosage: 2.5 MG, 1X/DAY
     Route: 048
  58. MINT AMLODIPINE [Concomitant]
     Dosage: 5 MG, 1X/DAY
     Route: 048
  59. TUDORZA GENUAIR [Concomitant]
     Active Substance: ACLIDINIUM BROMIDE
     Dosage: 400 MCG 1 INHALATION TWO TIMES A DAY
     Route: 055

REACTIONS (6)
  - Injection site pain [Unknown]
  - Diabetes mellitus inadequate control [Unknown]
  - Creatinine renal clearance decreased [Unknown]
  - Pancreatitis [Unknown]
  - Product use issue [Unknown]
  - Death [Fatal]
